FAERS Safety Report 7260590-0 (Version None)
Quarter: 2011Q1

REPORT INFORMATION
  Report Type: 
  Country: None (occurrence: None)
  Receive Date: 20110130
  Receipt Date: 20101220
  Transmission Date: 20110831
  Serious: No
  Sender: FDA-Public Use
  Company Number: US-ABBOTT-10P-163-0692957-00

PATIENT
  Age: 39 Year
  Sex: Male

DRUGS (4)
  1. HUMIRA [Suspect]
     Indication: CROHN'S DISEASE
     Dosage: 4 INJECTIONS
     Dates: start: 20101214, end: 20101214
  2. HUMIRA [Suspect]
  3. PENTASA [Concomitant]
     Indication: CROHN'S DISEASE
  4. HUMIRA [Suspect]
     Dosage: 2 INJECTIONS

REACTIONS (1)
  - OROPHARYNGEAL PAIN [None]
